FAERS Safety Report 6749146-3 (Version None)
Quarter: 2010Q2

REPORT INFORMATION
  Report Type: 
  Country: None (occurrence: None)
  Receive Date: 20100527
  Receipt Date: 20100527
  Transmission Date: 20101027
  Serious: Yes (Other)
  Sender: FDA-Public Use
  Company Number: None

PATIENT
  Sex: Male
  Weight: 61.2356 kg

DRUGS (2)
  1. RELISTOR [Suspect]
     Indication: CONSTIPATION
     Dosage: 0.6 ML 1; 0.3 ML REDUCED
     Dates: start: 20100424
  2. RELISTOR [Suspect]
     Indication: CONSTIPATION
     Dosage: 0.6 ML 1; 0.3 ML REDUCED
     Dates: start: 20100516

REACTIONS (1)
  - SYNCOPE [None]
